FAERS Safety Report 6358214-X (Version None)
Quarter: 2009Q3

REPORT INFORMATION
  Report Type: 
  Country: None (occurrence: None)
  Receive Date: 20090916
  Receipt Date: 20090904
  Transmission Date: 20100115
  Serious: Yes (Other)
  Sender: FDA-Public Use
  Company Number: US-ELI_LILLY_AND_COMPANY-US200909001657

PATIENT
  Age: 48 Year
  Sex: Female

DRUGS (9)
  1. ZYPREXA [Suspect]
     Indication: BIPOLAR DISORDER
  2. GEODON [Concomitant]
     Indication: BIPOLAR I DISORDER
     Dosage: 20 MG, DAILY (1/D)
     Dates: start: 20070101
  3. XANAX [Concomitant]
     Indication: ANXIETY
     Dosage: 2 MG, DAILY (1/D)
  4. LAMICTAL [Concomitant]
  5. SERAX [Concomitant]
  6. PALIPERIDONE [Concomitant]
     Indication: BIPOLAR I DISORDER
  7. VALPROIC ACID [Concomitant]
     Indication: BIPOLAR I DISORDER
  8. SEROQUEL [Concomitant]
     Indication: BIPOLAR I DISORDER
  9. CLONAZEPAM [Concomitant]

REACTIONS (8)
  - ANGER [None]
  - BLOOD PRESSURE INCREASED [None]
  - DYSKINESIA [None]
  - DYSPHAGIA [None]
  - INSOMNIA [None]
  - MYALGIA [None]
  - OROMANDIBULAR DYSTONIA [None]
  - PSYCHOTIC DISORDER [None]
